FAERS Safety Report 5898337-2 (Version None)
Quarter: 2008Q3

REPORT INFORMATION
  Report Type: 
  Country: None (occurrence: None)
  Receive Date: 20080925
  Receipt Date: 20070919
  Transmission Date: 20090109
  Serious: No
  Sender: FDA-Public Use
  Company Number: A0683051A

PATIENT
  Age: 53 Year
  Sex: Male

DRUGS (7)
  1. WELLBUTRIN XL [Suspect]
     Indication: FIBROMYALGIA
     Dosage: 150MG PER DAY
     Route: 048
     Dates: start: 20070401, end: 20070810
  2. TESTRED [Concomitant]
  3. FENTANYL [Concomitant]
  4. UNKNOWN MEDICATION [Concomitant]
  5. CLONIDINE [Concomitant]
  6. KLONOPIN [Concomitant]
  7. PROTRIPTYLINE [Concomitant]

REACTIONS (3)
  - LETHARGY [None]
  - PAIN [None]
  - WITHDRAWAL SYNDROME [None]
